FAERS Safety Report 15378044 (Version 1)
Quarter: 2018Q3

REPORT INFORMATION
  Report Type: Spontaneous
  Country: US (occurrence: US)
  Receive Date: 20180906
  Receipt Date: 20180906
  Transmission Date: 20181010
  Serious: No
  Sender: FDA-Public Use
  Company Number: None

PATIENT
  Age: 41 Year
  Sex: Female

DRUGS (1)
  1. STELARA [Suspect]
     Active Substance: USTEKINUMAB
     Dates: start: 20160802

REACTIONS (3)
  - Drug dispensing error [None]
  - Incorrect dose administered [None]
  - Transcription medication error [None]

NARRATIVE: CASE EVENT DATE: 20180904
